FAERS Safety Report 4998038-9 (Version None)
Quarter: 2006Q2

REPORT INFORMATION
  Report Type: 
  Country: None (occurrence: None)
  Receive Date: 20060508
  Receipt Date: 20060505
  Transmission Date: 20061013
  Serious: Yes (Hospitalization)
  Sender: FDA-Public Use
  Company Number: 221030

PATIENT
  Age: 76 Year
  Sex: Female

DRUGS (2)
  1. RAPTIVA [Suspect]
     Indication: PSORIASIS
     Dosage: 1.25 ML, 1/WEEK, SUBCUTANEOUS
     Route: 058
     Dates: start: 20050301, end: 20050901
  2. RAPTIVA [Suspect]
     Indication: PSORIASIS
     Dosage: 1.25 ML, 1/WEEK, SUBCUTANEOUS
     Route: 058
     Dates: start: 20051001

REACTIONS (5)
  - CONDITION AGGRAVATED [None]
  - HYPERTENSION [None]
  - PNEUMONIA [None]
  - PSORIASIS [None]
  - VERTIGO [None]
